FAERS Safety Report 8057096-8 (Version None)
Quarter: 2012Q1

REPORT INFORMATION
  Report Type: 
  Country: None (occurrence: None)
  Receive Date: 20120119
  Receipt Date: 20120112
  Transmission Date: 20120608
  Serious: Yes (Hospitalization)
  Sender: FDA-Public Use
  Company Number: US-US-EMD SERONO, INC.-7107004

PATIENT
  Sex: Male

DRUGS (3)
  1. ACETAMINOPHEN [Concomitant]
     Indication: PREMEDICATION
  2. IBUPROFEN [Concomitant]
     Indication: PREMEDICATION
  3. REBIF [Suspect]
     Indication: PRODUCT USED FOR UNKNOWN INDICATION
     Route: 058
     Dates: start: 20110912

REACTIONS (1)
  - GASTROINTESTINAL DISORDER [None]
